FAERS Safety Report 4728138-X (Version None)
Quarter: 2005Q3

REPORT INFORMATION
  Report Type: 
  Country: None (occurrence: None)
  Receive Date: 20050728
  Receipt Date: 20050728
  Transmission Date: 20060218
  Serious: Yes (Life-Threatening, Hospitalization)
  Sender: FDA-Public Use
  Company Number: None

PATIENT
  Age: 75 Year
  Sex: Female
  Weight: 54.4316 kg

DRUGS (6)
  1. CIPRO [Suspect]
     Indication: DIVERTICULITIS
     Dosage: PO
     Route: 048
  2. METRONIDAZOLE [Suspect]
     Indication: DIVERTICULITIS
     Dosage: PO
     Route: 048
  3. PRILOSEC [Concomitant]
  4. LIPITOR [Concomitant]
  5. HYDROCHLOROTHIAZIDE [Concomitant]
  6. ASPIRIN [Concomitant]

REACTIONS (1)
  - ELECTROCARDIOGRAM QT PROLONGED [None]
